FAERS Safety Report 22117809 (Version 1)
Quarter: 2023Q1

REPORT INFORMATION
  Report Type: Spontaneous
  Country: US (occurrence: US)
  Receive Date: 20230321
  Receipt Date: 20230321
  Transmission Date: 20230418
  Serious: Yes (Other)
  Sender: FDA-Public Use
  Company Number: US-STRIDES ARCOLAB LIMITED-2023SP001068

PATIENT
  Age: 26 Year
  Sex: Male

DRUGS (3)
  1. GABAPENTIN [Suspect]
     Active Substance: GABAPENTIN
     Indication: Compartment syndrome
     Dosage: 300 MILLIGRAM, TID (THERAPY CONTINUED DESPITE LACK OF EFFICACY, AND LATER THE THERAPY WAS STOPPED)
     Route: 065
  2. MORPHINE SULFATE [Suspect]
     Active Substance: MORPHINE SULFATE
     Indication: Compartment syndrome
     Dosage: 15 MILLIGRAM, EVERY 8 HOURS (MORPHINE EXTENDED-RELEASE)
     Route: 065
  3. OXYCODONE [Suspect]
     Active Substance: OXYCODONE
     Indication: Compartment syndrome
     Dosage: 15 MILLIGRAM, EVERY 4 HRS
     Route: 065

REACTIONS (1)
  - Drug ineffective for unapproved indication [Unknown]
